FAERS Safety Report 17428962 (Version 4)
Quarter: 2022Q4

REPORT INFORMATION
  Report Type: Spontaneous
  Country: US (occurrence: US)
  Receive Date: 20200217
  Receipt Date: 20221228
  Transmission Date: 20230112
  Serious: Yes (Hospitalization)
  Sender: FDA-Public Use
  Company Number: US-BIOGEN-2020BI00835053

PATIENT
  Age: 58 Year
  Sex: Female
  Weight: 66.284 kg

DRUGS (21)
  1. TECFIDERA [Suspect]
     Active Substance: DIMETHYL FUMARATE
     Indication: Multiple sclerosis
     Dosage: MAINTENANCE DOSE
     Route: 050
  2. TECFIDERA [Suspect]
     Active Substance: DIMETHYL FUMARATE
     Dosage: STARTING DOSE
     Route: 050
  3. TECFIDERA [Suspect]
     Active Substance: DIMETHYL FUMARATE
     Dosage: STARTING DOSE
     Route: 050
     Dates: start: 20140820
  4. TECFIDERA [Suspect]
     Active Substance: DIMETHYL FUMARATE
     Dosage: MAINTENANCE DOSE
     Route: 050
     Dates: end: 20211102
  5. TECFIDERA [Suspect]
     Active Substance: DIMETHYL FUMARATE
     Route: 050
     Dates: start: 2014, end: 2022
  6. TYLENOL [Concomitant]
     Active Substance: ACETAMINOPHEN
     Indication: Product used for unknown indication
     Dosage: TAKE 325 MG BY MOUTH DAILY.
     Route: 050
  7. AMOXIL [Concomitant]
     Active Substance: AMOXICILLIN
     Indication: Product used for unknown indication
     Dosage: IF NEEDED
     Route: 050
  8. VITAMIN C [Concomitant]
     Active Substance: ASCORBIC ACID
     Indication: Product used for unknown indication
     Dosage: TAKE 1000 MG BY MOUTH DAILY.
     Route: 050
  9. ASPIRIN [Concomitant]
     Active Substance: ASPIRIN
     Indication: Product used for unknown indication
     Dosage: TAKE 81 MG BY MOUTH DAILY
     Route: 050
  10. AZELASTINE [Concomitant]
     Active Substance: AZELASTINE
     Indication: Product used for unknown indication
     Route: 050
  11. Calcium-Magnesium-Zinc [Concomitant]
     Indication: Product used for unknown indication
     Dosage: 333-133-5 MG
     Route: 050
  12. FERROUS SULFATE [Concomitant]
     Active Substance: FERROUS SULFATE
     Indication: Product used for unknown indication
     Dosage: FERROUS SULPHATE (IRON) 325 (65 FE) MG ?TAKE 325 MG BY MOUTH 2 TIMES DAILY. (PATIENT TAKING DIFFE...
     Route: 050
  13. FLONASE [Concomitant]
     Active Substance: FLUTICASONE PROPIONATE
     Indication: Product used for unknown indication
     Dosage: FLUTICASONE (FLONASE) 50 MCG/ACT NASAL SPRAY. 1 SPRAY EACH NOSTRIL DAILY. (PATIENT TAKING DIFFERE...
     Route: 050
  14. LORATADINE [Concomitant]
     Active Substance: LORATADINE
     Indication: Product used for unknown indication
     Route: 050
  15. MOBIC [Concomitant]
     Active Substance: MELOXICAM
     Indication: Product used for unknown indication
     Dosage: TAKE 7.5 MG BY MOUTH DAILY
     Route: 050
  16. SINGULAIR [Concomitant]
     Active Substance: MONTELUKAST SODIUM
     Indication: Product used for unknown indication
     Dosage: TAKE 10 MG BY MOUTH NIGHTLY.
     Route: 050
  17. PRILOSEC [Concomitant]
     Active Substance: OMEPRAZOLE MAGNESIUM
     Indication: Hyperchlorhydria
     Dosage: TAKE 1 CAPS. BY MOUTH DAILY
     Route: 050
  18. potassium chloride SA [Concomitant]
     Indication: Product used for unknown indication
     Dosage: CONTROLLED RELEASE TABLETS, TAKE 1 TAB. BY MOUTH DAILY
     Route: 050
  19. RESTASIS [Concomitant]
     Active Substance: CYCLOSPORINE
     Indication: Product used for unknown indication
     Dosage: 0.05 PERCENT
     Route: 050
  20. CYANOCOBALAMIN [Concomitant]
     Active Substance: CYANOCOBALAMIN
     Indication: Product used for unknown indication
     Route: 050
  21. vitamin d, ergocalciferol [Concomitant]
     Indication: Product used for unknown indication
     Dosage: 1.25 MG (50000 UT)
     Route: 050

REACTIONS (2)
  - Walking distance test abnormal [Unknown]
  - Conduction disorder [Recovered/Resolved]

NARRATIVE: CASE EVENT DATE: 20200129
